FAERS Safety Report 16543692 (Version 3)
Quarter: 2019Q3

REPORT INFORMATION
  Report Type: Report from Study
  Country: BE (occurrence: BE)
  Receive Date: 20190709
  Receipt Date: 20190719
  Transmission Date: 20191004
  Serious: Yes (Hospitalization)
  Sender: FDA-Public Use
  Company Number: BE-BIOGEN-2019BI00758233

PATIENT
  Age: 53 Year
  Sex: Female

DRUGS (10)
  1. TYSABRI [Suspect]
     Active Substance: NATALIZUMAB
     Indication: MULTIPLE SCLEROSIS
     Route: 065
     Dates: start: 20120202
  2. COLCHICINE. [Concomitant]
     Active Substance: COLCHICINE
     Indication: MUSCULOSKELETAL PAIN
     Route: 048
     Dates: start: 20190329
  3. VITAMIN D [Concomitant]
     Active Substance: VITAMIN D NOS
     Indication: VITAMIN D DEFICIENCY
     Dosage: 1 AMP
     Route: 048
     Dates: start: 20171116
  4. OMEPRAZOLE. [Concomitant]
     Active Substance: OMEPRAZOLE
     Indication: GASTRIC ULCER
     Dosage: 20 MG PO DIE
     Route: 048
     Dates: start: 201205
  5. FOLAVIT [Concomitant]
     Active Substance: FOLIC ACID
     Indication: FOLATE DEFICIENCY
     Dosage: 4 MG DIE
     Route: 065
     Dates: start: 20190426
  6. IBUPROFEN. [Concomitant]
     Active Substance: IBUPROFEN
     Indication: MUSCULOSKELETAL PAIN
     Dosage: 600 MG PO PRN
     Route: 048
     Dates: start: 20130903
  7. LORMETAZEPAM [Concomitant]
     Active Substance: LORMETAZEPAM
     Indication: SLEEP DISORDER
     Route: 048
     Dates: start: 20180531
  8. CIRCADIN [Concomitant]
     Active Substance: MELATONIN
     Dosage: 2 MG PO DIE
     Route: 048
     Dates: start: 20170720
  9. CIRCADIN [Concomitant]
     Active Substance: MELATONIN
     Indication: SLEEP DISORDER
     Dosage: 2 MG PO DIE
     Route: 048
     Dates: start: 20170720
  10. IBUPROFEN. [Concomitant]
     Active Substance: IBUPROFEN
     Dosage: 2 MG PO DIE
     Route: 048
     Dates: start: 20170720

REACTIONS (2)
  - Arthritis [Recovered/Resolved]
  - Multiple sclerosis relapse [Recovered/Resolved]
